FAERS Safety Report 8892871 (Version 1)
Quarter: 2012Q4

REPORT INFORMATION
  Report Type: Spontaneous
  Country: DE (occurrence: None)
  Receive Date: 20121031
  Receipt Date: 20121031
  Transmission Date: 20130627
  Serious: Yes (Other)
  Sender: FDA-Public Use
  Company Number: 1464568

PATIENT
  Age: 74 Year
  Sex: Male

DRUGS (1)
  1. DOCETAXEL [Suspect]
     Indication: PROSTATE CARCINOMA
     Dosage: Not Reported once weekly,  UNKNOWN

REACTIONS (4)
  - Infusion site extravasation [None]
  - Cellulitis [None]
  - Skin hyperpigmentation [None]
  - Dysaesthesia [None]
